FAERS Safety Report 4668388-4 (Version None)
Quarter: 2005Q2

REPORT INFORMATION
  Report Type: 
  Country: None (occurrence: None)
  Receive Date: 20050523
  Receipt Date: 20050421
  Transmission Date: 20051028
  Serious: Yes (Other)
  Sender: FDA-Public Use
  Company Number: PHNU2005DE01715

PATIENT
  Sex: Male
  Weight: 76 kg

DRUGS (7)
  1. PREDNISOLONE [Concomitant]
     Dosage: 110 MG, UNK
     Route: 065
     Dates: start: 20030401, end: 20040301
  2. CYCLOPHOSPHAMIDE [Concomitant]
     Dosage: 500 MG/M2, UNK
     Route: 065
     Dates: start: 20020601, end: 20020901
  3. DEXAMETHASONE [Concomitant]
     Dosage: 40 MG, UNK
     Route: 065
     Dates: start: 20020601, end: 20020901
  4. RADIOTHERAPY [Concomitant]
     Indication: COMPRESSION FRACTURE
     Route: 065
     Dates: start: 20020901, end: 20021001
  5. AREDIA [Suspect]
     Indication: PLASMACYTOMA
     Dosage: 90 MG, QMO
     Route: 042
     Dates: start: 20020601, end: 20020801
  6. MELPHALAN [Concomitant]
     Dosage: 20 TO 28 MG
     Route: 042
     Dates: start: 20030401, end: 20040301
  7. ZOMETA [Suspect]
     Indication: PLASMACYTOMA
     Dosage: 4 MG, QMO
     Route: 042
     Dates: start: 20021001, end: 20050401

REACTIONS (4)
  - ASEPTIC NECROSIS BONE [None]
  - JAW DISORDER [None]
  - ORAL SURGERY [None]
  - OSTEONECROSIS [None]
